FAERS Safety Report 15023214 (Version 1)
Quarter: 2018Q2

REPORT INFORMATION
  Report Type: Spontaneous
  Country: US (occurrence: US)
  Receive Date: 20180602
  Receipt Date: 20180602
  Transmission Date: 20180711
  Serious: No
  Sender: FDA-Public Use
  Company Number: None

PATIENT
  Age: 44 Year
  Sex: Female
  Weight: 63.9 kg

DRUGS (8)
  1. ZINC. [Concomitant]
     Active Substance: ZINC
  2. VESICARE [Suspect]
     Active Substance: SOLIFENACIN SUCCINATE
     Indication: INCONTINENCE
     Dosage: ?          QUANTITY:1 DF DOSAGE FORM;?
     Route: 048
     Dates: start: 20180529, end: 20180531
  3. MULTIVITAMIN [Concomitant]
     Active Substance: VITAMINS
  4. MAGNESIUM OXIDE. [Concomitant]
     Active Substance: MAGNESIUM OXIDE
  5. XANAX [Concomitant]
     Active Substance: ALPRAZOLAM
  6. NUVARING [Concomitant]
     Active Substance: ETHINYL ESTRADIOL\ETONOGESTREL
  7. CETIRIZINE [Concomitant]
     Active Substance: CETIRIZINE HYDROCHLORIDE
  8. VITAMIN B COMPLEX [Concomitant]
     Active Substance: CYANOCOBALAMIN\DEXPANTHENOL\NIACINAMIDE\PYRIDOXINE HYDROCHLORIDE\RIBOFLAVIN 5^-PHOSPHATE SODIUM\THIAMINE HYDROCHLORIDE\VITAMIN B COMPLEX

REACTIONS (15)
  - Eructation [None]
  - Derealisation [None]
  - Feeling of despair [None]
  - Disturbance in attention [None]
  - Asthenia [None]
  - Muscular weakness [None]
  - Abdominal pain upper [None]
  - Depressed mood [None]
  - Dizziness [None]
  - Balance disorder [None]
  - Mental impairment [None]
  - Dry mouth [None]
  - Fatigue [None]
  - Dry eye [None]
  - Crying [None]

NARRATIVE: CASE EVENT DATE: 20180530
